FAERS Safety Report 9173244 (Version 1)
Quarter: 2013Q1

REPORT INFORMATION
  Report Type: Spontaneous
  Country: US (occurrence: None)
  Receive Date: 20130314
  Receipt Date: 20130314
  Transmission Date: 20140127
  Serious: Yes (Other)
  Sender: FDA-Public Use
  Company Number: TPA2013A02063

PATIENT
  Age: 71 Year
  Sex: Female

DRUGS (1)
  1. PREVACID (LANSOPRAZOLE) [Suspect]

REACTIONS (2)
  - Gastric ulcer haemorrhage [None]
  - Gastrooesophageal reflux disease [None]
